FAERS Safety Report 19655386 (Version 2)
Quarter: 2021Q4

REPORT INFORMATION
  Report Type: Report from Study
  Country: US (occurrence: US)
  Receive Date: 20210804
  Receipt Date: 20211022
  Transmission Date: 20220303
  Serious: No
  Sender: FDA-Public Use
  Company Number: US-BIOVITRUM-2021US6980

PATIENT
  Age: 3 Year
  Sex: Female

DRUGS (7)
  1. KINERET [Suspect]
     Active Substance: ANAKINRA
     Indication: Cryopyrin associated periodic syndrome
     Route: 058
     Dates: start: 20210709
  2. PEPCID [Concomitant]
     Active Substance: FAMOTIDINE
  3. COLCHICINE [Concomitant]
     Active Substance: COLCHICINE
  4. MELOXICAM [Concomitant]
     Active Substance: MELOXICAM
  5. ZYRTEC [Concomitant]
     Active Substance: CETIRIZINE HYDROCHLORIDE
  6. IRON [Concomitant]
     Active Substance: IRON
  7. HYDROXYZINE [Concomitant]
     Active Substance: HYDROXYZINE HYDROCHLORIDE

REACTIONS (8)
  - Eczema [Unknown]
  - Discomfort [Recovering/Resolving]
  - Injection site bruising [Unknown]
  - Injection site erythema [Unknown]
  - Injection site mass [Unknown]
  - Rash pruritic [Unknown]
  - Injection site rash [Unknown]
  - Off label use [Not Recovered/Not Resolved]

NARRATIVE: CASE EVENT DATE: 20210709
